FAERS Safety Report 5342595-X (Version None)
Quarter: 2007Q2

REPORT INFORMATION
  Report Type: 
  Country: None (occurrence: None)
  Receive Date: 20070601
  Receipt Date: 20070222
  Transmission Date: 20071010
  Serious: No
  Sender: FDA-Public Use
  Company Number: A0640576A

PATIENT
  Age: 64 Year
  Sex: Male

DRUGS (3)
  1. AUGMENTIN XR [Suspect]
     Dosage: 2TAB TWICE PER DAY
     Route: 048
     Dates: start: 20070201, end: 20070201
  2. COREG [Suspect]
     Indication: HYPERTENSION
     Dosage: 6.25MG TWICE PER DAY
     Route: 048
     Dates: start: 20061201
  3. AVALIDE [Concomitant]

REACTIONS (2)
  - BLOOD PRESSURE INCREASED [None]
  - SINUSITIS [None]
